FAERS Safety Report 7528739-X (Version None)
Quarter: 2011Q2

REPORT INFORMATION
  Report Type: 
  Country: None (occurrence: None)
  Receive Date: 20110607
  Receipt Date: 20101019
  Transmission Date: 20111010
  Serious: No
  Sender: FDA-Public Use
  Company Number: US-ASTRAZENECA-2010SE50570

PATIENT
  Sex: Female

DRUGS (8)
  1. CORTICOSTEROIDS [Concomitant]
  2. CITRUCEL [Concomitant]
     Dosage: UNKNOWN
  3. SYNTHROID [Concomitant]
     Dosage: UNKNOWN
  4. VITAMIN D [Concomitant]
  5. VITAMIN B [Concomitant]
     Dosage: UNKNOWN
  6. LOVAZA [Concomitant]
     Dosage: UNKNOWN
  7. PRILOSEC OTC [Suspect]
     Route: 048
     Dates: start: 20100927, end: 20101008
  8. MAGNESIUM SULFATE [Concomitant]
     Dosage: UNKNOWN

REACTIONS (2)
  - VISION BLURRED [None]
  - ASTHENOPIA [None]
